FAERS Safety Report 14233498 (Version 2)
Quarter: 2017Q4

REPORT INFORMATION
  Report Type: Report from Study
  Country: PL (occurrence: PL)
  Receive Date: 20171128
  Receipt Date: 20171128
  Transmission Date: 20180321
  Serious: Yes (Other)
  Sender: FDA-Public Use
  Company Number: PL-TEVA-2017-PL-826081

PATIENT

DRUGS (1)
  1. ZINC. [Suspect]
     Active Substance: ZINC
     Indication: HEPATO-LENTICULAR DEGENERATION
     Dosage: 45MG ELEMENTAL ZINC
     Route: 065

REACTIONS (1)
  - Gastritis erosive [Recovered/Resolved]
